FAERS Safety Report 9919785 (Version 2)
Quarter: 2014Q2

REPORT INFORMATION
  Report Type: Spontaneous
  Country: US (occurrence: US)
  Receive Date: 20140224
  Receipt Date: 20140521
  Transmission Date: 20141212
  Serious: No
  Sender: FDA-Public Use
  Company Number: US-GILEAD-2014-0094995

PATIENT
  Age: 76 Year
  Sex: Female

DRUGS (3)
  1. LETAIRIS [Suspect]
     Indication: PULMONARY HYPERTENSION
     Route: 065
     Dates: start: 20080804, end: 20140128
  2. WARFARIN [Suspect]
     Indication: ANTICOAGULANT THERAPY
     Dosage: UNK, QD
     Route: 065
  3. AMIODARONE [Concomitant]
     Indication: PULMONARY HYPERTENSION
     Dosage: UNK, QD

REACTIONS (1)
  - Swelling [Unknown]
